FAERS Safety Report 11690841 (Version 1)
Quarter: 2015Q4

REPORT INFORMATION
  Report Type: Spontaneous
  Country: US (occurrence: US)
  Receive Date: 20151102
  Receipt Date: 20151102
  Transmission Date: 20160304
  Serious: No
  Sender: FDA-Public Use
  Company Number: GXBR2015US002199

PATIENT
  Age: 48 Year
  Sex: Female
  Weight: 53.97 kg

DRUGS (5)
  1. LUTEIN [Concomitant]
     Active Substance: LUTEIN
     Dosage: UNK DF, UNK
  2. CICLOSPORIN SANDOZ [Suspect]
     Active Substance: CYCLOSPORINE
     Indication: PRODUCT USED FOR UNKNOWN INDICATION
     Dosage: 25 MG, ONCE/SINGLE
     Route: 048
     Dates: start: 20150923, end: 20150923
  3. GABAPENTIN. [Concomitant]
     Active Substance: GABAPENTIN
     Dosage: 300 MG, BID
  4. MULTI-VIT [Concomitant]
     Active Substance: VITAMINS
     Dosage: UNK DF, UNK
  5. ESTROVEN [Concomitant]
     Active Substance: DIETARY SUPPLEMENT
     Dosage: UNK DF, UNK

REACTIONS (1)
  - Accidental exposure to product [Recovered/Resolved]

NARRATIVE: CASE EVENT DATE: 20150923
